FAERS Safety Report 7811289-0 (Version None)
Quarter: 2011Q4

REPORT INFORMATION
  Report Type: 
  Country: None (occurrence: None)
  Receive Date: 20111012
  Receipt Date: 20111012
  Transmission Date: 20120403
  Serious: Yes (Other)
  Sender: FDA-Public Use
  Company Number: None

PATIENT
  Sex: Male
  Weight: 81.6475 kg

DRUGS (2)
  1. SEROQUEL [Suspect]
  2. CELEXA [Suspect]

REACTIONS (2)
  - MOOD SWINGS [None]
  - ADVERSE EVENT [None]
